FAERS Safety Report 8453055-1 (Version None)
Quarter: 2012Q2

REPORT INFORMATION
  Report Type: 
  Country: None (occurrence: None)
  Receive Date: 20120620
  Receipt Date: 20120613
  Transmission Date: 20120825
  Serious: Yes (Hospitalization, Other)
  Sender: FDA-Public Use
  Company Number: PHEH2012US011894

PATIENT
  Sex: Female
  Weight: 59.864 kg

DRUGS (4)
  1. TRILEPTAL [Suspect]
     Indication: BIPOLAR DISORDER
     Dosage: 600 MG IN THE MORNING AND 1200 MG AT NIGHT
     Route: 048
  2. TRAZODONE HCL [Suspect]
     Indication: BIPOLAR DISORDER
     Dosage: 200 MG DAILY AT BEDTIME
  3. CHANTIX [Suspect]
     Indication: TOBACCO USER
     Dosage: 0.5 MG, UNK
     Dates: start: 20060101
  4. ATIVAN [Suspect]
     Indication: BIPOLAR DISORDER
     Dosage: 2 MG DAILY AT BEDTIME
     Route: 048

REACTIONS (3)
  - BIPOLAR DISORDER [None]
  - PSYCHOTIC DISORDER [None]
  - DELUSION [None]
